FAERS Safety Report 6490031-2 (Version None)
Quarter: 2009Q4

REPORT INFORMATION
  Report Type: 
  Country: None (occurrence: None)
  Receive Date: 20091211
  Receipt Date: 20091209
  Transmission Date: 20100525
  Serious: Yes (Other)
  Sender: FDA-Public Use
  Company Number: GB-ROCHE-640477

PATIENT
  Age: 18 Year
  Sex: Female

DRUGS (6)
  1. CLONAZEPAM [Suspect]
     Indication: DRUG USE FOR UNKNOWN INDICATION
     Dosage: DOSING AMONT- 0.5 MG TO 1.5 MG
     Route: 065
     Dates: start: 20090608
  2. CLOZARIL [Suspect]
     Indication: SCHIZOPHRENIA
     Route: 065
     Dates: start: 20090608
  3. CLOZARIL [Suspect]
     Route: 065
     Dates: start: 20070613, end: 20070629
  4. CLOZARIL [Suspect]
     Route: 065
     Dates: start: 20091030
  5. LAMOTRIGINE [Concomitant]
     Indication: SCHIZOPHRENIA
  6. OLANZAPINE [Concomitant]
     Indication: SCHIZOPHRENIA

REACTIONS (5)
  - ACCIDENTAL EXPOSURE [None]
  - BLOOD PRESSURE INCREASED [None]
  - HEART RATE INCREASED [None]
  - OBESITY [None]
  - VOMITING [None]
